FAERS Safety Report 18276821 (Version 1)
Quarter: 2020Q3

REPORT INFORMATION
  Report Type: Spontaneous
  Country: US (occurrence: US)
  Receive Date: 20200917
  Receipt Date: 20200917
  Transmission Date: 20201103
  Serious: No
  Sender: FDA-Public Use
  Company Number: US-BAYER-2020-200620

PATIENT
  Sex: Female

DRUGS (1)
  1. ALEVE [Suspect]
     Active Substance: NAPROXEN SODIUM
     Indication: PAIN
     Dosage: 2 DF, QD
     Route: 048
     Dates: start: 20200825, end: 20200909

REACTIONS (4)
  - Expired product administered [Unknown]
  - Therapeutic product effect incomplete [Unknown]
  - Pain [Unknown]
  - Incorrect product administration duration [Unknown]
